FAERS Safety Report 16078801 (Version 1)
Quarter: 2019Q1

REPORT INFORMATION
  Report Type: Spontaneous
  Country: US (occurrence: US)
  Receive Date: 20190315
  Receipt Date: 20190315
  Transmission Date: 20190418
  Serious: No
  Sender: FDA-Public Use
  Company Number: US-PERRIGO-18US007643

PATIENT
  Age: 61 Year
  Sex: Female
  Weight: 86.17 kg

DRUGS (2)
  1. ALPRAZOLAM. [Concomitant]
     Active Substance: ALPRAZOLAM
     Indication: INSOMNIA
     Dosage: UNK
     Route: 065
  2. SCOPOLAMINE [Suspect]
     Active Substance: SCOPOLAMINE
     Indication: VERTIGO
     Dosage: 1 MG EVERY 3 DAYS
     Route: 062
     Dates: start: 201801, end: 20180518

REACTIONS (2)
  - Off label use [Recovered/Resolved]
  - Thermal burn [Recovering/Resolving]

NARRATIVE: CASE EVENT DATE: 201801
